APPROVED DRUG PRODUCT: CLINDAMYCIN HYDROCHLORIDE
Active Ingredient: CLINDAMYCIN HYDROCHLORIDE
Strength: EQ 150MG BASE
Dosage Form/Route: CAPSULE;ORAL
Application: A065194 | Product #001 | TE Code: AB
Applicant: EPIC PHARMA LLC
Approved: Mar 22, 2004 | RLD: No | RS: No | Type: RX